FAERS Safety Report 16231943 (Version 1)
Quarter: 2019Q2

REPORT INFORMATION
  Report Type: Report from Study
  Country: IT (occurrence: IT)
  Receive Date: 20190424
  Receipt Date: 20190424
  Transmission Date: 20190711
  Serious: Yes (Other)
  Sender: FDA-Public Use
  Company Number: IT-VIIV HEALTHCARE LIMITED-IT2019073060

PATIENT
  Age: 54 Year
  Sex: Male

DRUGS (5)
  1. LORAZEPAM. [Suspect]
     Active Substance: LORAZEPAM
     Indication: MENTAL DISORDER
     Dosage: UNK
     Route: 065
     Dates: start: 20190402, end: 20190403
  2. NOZINAN [Suspect]
     Active Substance: LEVOMEPROMAZINE
     Indication: MENTAL DISORDER
     Dosage: UNK
     Route: 065
     Dates: start: 20190402, end: 20190403
  3. KIVEXA [Suspect]
     Active Substance: ABACAVIR SULFATE\LAMIVUDINE
     Indication: HIV TEST
     Dosage: UNK
     Route: 065
     Dates: start: 20190402, end: 20190403
  4. CLONAZEPAM. [Suspect]
     Active Substance: CLONAZEPAM
     Indication: MENTAL DISORDER
     Dosage: UNK
     Route: 065
     Dates: start: 20190402, end: 20190403
  5. DOLUTEGRAVIR [Suspect]
     Active Substance: DOLUTEGRAVIR
     Indication: HIV TEST
     Dosage: UNK
     Route: 065
     Dates: start: 20190402, end: 20190403

REACTIONS (1)
  - Restlessness [Recovering/Resolving]

NARRATIVE: CASE EVENT DATE: 20190403
